FAERS Safety Report 7725680-4 (Version None)
Quarter: 2011Q3

REPORT INFORMATION
  Report Type: 
  Country: None (occurrence: None)
  Receive Date: 20110902
  Receipt Date: 20110822
  Transmission Date: 20111222
  Serious: Yes (Hospitalization, Other)
  Sender: FDA-Public Use
  Company Number: PHFR2011GB03539

PATIENT
  Sex: Male

DRUGS (6)
  1. NEBIVOLOL HCL [Concomitant]
     Dosage: 5 MG, DAILY
     Route: 048
  2. CLOZAPINE [Suspect]
     Indication: SCHIZOPHRENIA
     Dosage: 300 MG, DAILY
     Route: 048
     Dates: start: 20110303, end: 20110602
  3. CITALOPRAM [Concomitant]
     Indication: OBSESSIVE-COMPULSIVE DISORDER
     Dosage: 20 MG, DAILY
     Route: 048
     Dates: start: 20110204
  4. LEVOTHYROXINE SODIUM [Concomitant]
     Dosage: 100 UG, DAILY
     Route: 048
  5. ATORVASTATIN [Concomitant]
     Dosage: 20 MG, DAILY
     Route: 048
  6. HYPROMELLOSE [Concomitant]
     Route: 061

REACTIONS (11)
  - NEUTROPHIL COUNT DECREASED [None]
  - HAEMOGLOBIN DECREASED [None]
  - NEUTROPHIL COUNT INCREASED [None]
  - WHITE BLOOD CELL COUNT INCREASED [None]
  - CHILLS [None]
  - RED BLOOD CELL COUNT DECREASED [None]
  - LETHARGY [None]
  - HYPERHIDROSIS [None]
  - HAEMATOCRIT DECREASED [None]
  - AGRANULOCYTOSIS [None]
  - WHITE BLOOD CELL COUNT DECREASED [None]
